FAERS Safety Report 8559177-9 (Version None)
Quarter: 2012Q3

REPORT INFORMATION
  Report Type: 
  Country: None (occurrence: None)
  Receive Date: 20120720
  Receipt Date: 20120705
  Transmission Date: 20120928
  Serious: Yes (Other)
  Sender: FDA-Public Use
  Company Number: 2011MPI00332

PATIENT
  Age: 38 Year
  Sex: Male

DRUGS (1)
  1. BRENTUXIMAB VEDOTIN (BRENTUXIMAB VEDOTIN) INJECTION [Suspect]
     Indication: PRODUCT USED FOR UNKNOWN INDICATION
     Dosage: 160 MG, INTRAVENOUS
     Route: 042
     Dates: start: 20110304, end: 20110304

REACTIONS (1)
  - DEAFNESS TRANSITORY [None]
